FAERS Safety Report 11623805 (Version 1)
Quarter: 2015Q4

REPORT INFORMATION
  Report Type: Spontaneous
  Country: US (occurrence: US)
  Receive Date: 20151013
  Receipt Date: 20151013
  Transmission Date: 20160304
  Serious: No
  Sender: FDA-Public Use
  Company Number: US-JNJFOC-20150205905

PATIENT
  Sex: Female

DRUGS (1)
  1. TYLENOL EXTRA STRENGTH [Suspect]
     Active Substance: ACETAMINOPHEN
     Indication: ARTHRALGIA
     Dosage: 2 CAPLETS AND ABOUT AN HOUR LATER TOOK ANOTHER DOSE OF 2 CAPLETS
     Route: 048
     Dates: start: 20150204

REACTIONS (1)
  - Extra dose administered [Unknown]
